FAERS Safety Report 9721605 (Version 1)
Quarter: 2013Q4

REPORT INFORMATION
  Report Type: Spontaneous
  Country: US (occurrence: US)
  Receive Date: 20131201
  Receipt Date: 20131201
  Transmission Date: 20140711
  Serious: No
  Sender: FDA-Public Use
  Company Number: US-ABBVIE-13P-163-1141371-00

PATIENT
  Sex: Male
  Weight: 129.39 kg

DRUGS (13)
  1. ANDROGEL [Suspect]
     Indication: BLOOD TESTOSTERONE DECREASED
     Dates: start: 201303, end: 201305
  2. LOSARTIN [Concomitant]
     Indication: HYPERTENSION
  3. GLIMEPIRIDE [Concomitant]
     Indication: DIABETES MELLITUS
  4. LAMICTAL [Concomitant]
     Indication: DEPRESSION
  5. WELLBUTRIN [Concomitant]
     Indication: DEPRESSION
  6. LIPITOR [Concomitant]
     Indication: BLOOD CHOLESTEROL INCREASED
  7. METFORMIN [Concomitant]
     Indication: DIABETES MELLITUS
  8. LANTUS [Concomitant]
     Indication: DIABETES MELLITUS
  9. VITAMIN D3 [Concomitant]
     Indication: VITAMIN D DEFICIENCY
  10. VITAMIN B 12 [Concomitant]
     Indication: VITAMIN B12 DEFICIENCY
  11. AMBIEN [Concomitant]
     Indication: INSOMNIA
  12. XANAX [Concomitant]
     Indication: ANXIETY
  13. PERCOCET [Concomitant]
     Indication: BACK PAIN

REACTIONS (7)
  - Hypotonia [Not Recovered/Not Resolved]
  - Blood testosterone decreased [Not Recovered/Not Resolved]
  - Anxiety [Not Recovered/Not Resolved]
  - Depression [Not Recovered/Not Resolved]
  - Weight increased [Not Recovered/Not Resolved]
  - Fatigue [Not Recovered/Not Resolved]
  - Insomnia [Not Recovered/Not Resolved]
